FAERS Safety Report 7033412-0 (Version None)
Quarter: 2010Q4

REPORT INFORMATION
  Report Type: 
  Country: None (occurrence: None)
  Receive Date: 20101007
  Receipt Date: 20100927
  Transmission Date: 20110411
  Serious: Yes (Other)
  Sender: FDA-Public Use
  Company Number: US-PFIZER INC-2010122435

PATIENT
  Sex: Female

DRUGS (1)
  1. LYRICA [Suspect]
     Indication: POST HERPETIC NEURALGIA
     Dosage: UNK

REACTIONS (6)
  - EYE INJURY [None]
  - EYE SWELLING [None]
  - FALL [None]
  - HERPES ZOSTER [None]
  - HYPERSENSITIVITY [None]
  - URTICARIA [None]
